FAERS Safety Report 10160123 (Version 1)
Quarter: 2014Q2

REPORT INFORMATION
  Report Type: Spontaneous
  Country: US (occurrence: DE)
  Receive Date: 20140508
  Receipt Date: 20140508
  Transmission Date: 20141212
  Serious: Yes (Hospitalization, Other)
  Sender: FDA-Public Use
  Company Number: 2014SP002529

PATIENT
  Sex: Male
  Weight: 104 kg

DRUGS (16)
  1. CYTARABINE [Suspect]
     Indication: PRODUCT USED FOR UNKNOWN INDICATION
     Dates: start: 20130301
  2. RUXOLITINIB [Suspect]
     Indication: MYELOFIBROSIS
     Route: 048
     Dates: start: 20140106
  3. RUXOLITINIB [Suspect]
     Indication: MYELOFIBROSIS
     Route: 048
     Dates: start: 20140106, end: 20140121
  4. RUXOLITINIB [Suspect]
     Indication: MYELOFIBROSIS
     Route: 065
     Dates: start: 20140122, end: 20140228
  5. AZACITIDINE [Suspect]
     Indication: PRODUCT USED FOR UNKNOWN INDICATION
     Dates: start: 20130306
  6. FLOXAL [Concomitant]
     Dates: start: 201401, end: 201401
  7. FOLATE [Concomitant]
     Dates: start: 201401
  8. ALLOPURINOL [Concomitant]
     Dates: start: 201401
  9. NOVALGINE [Concomitant]
  10. ACICLOVIR [Concomitant]
  11. SULFAMETHOXAZOLE [Concomitant]
  12. TRIMETHOPRIM [Concomitant]
  13. CIPROFLOXACIN [Concomitant]
  14. CALCIUM CHLORIDE [Concomitant]
  15. PANTOPRAZOLE SODIUM [Concomitant]
  16. KONAKION [Concomitant]
     Dates: start: 20140224, end: 20140312

REACTIONS (5)
  - Leukocytosis [Not Recovered/Not Resolved]
  - Anaemia [Unknown]
  - Thrombocytopenia [Unknown]
  - Febrile infection [Recovered/Resolved]
  - Pyrexia [Recovered/Resolved]
